FAERS Safety Report 25203213 (Version 1)
Quarter: 2025Q2

REPORT INFORMATION
  Report Type: Spontaneous
  Country: US (occurrence: US)
  Receive Date: 20250416
  Receipt Date: 20250416
  Transmission Date: 20250717
  Serious: Yes (Other)
  Sender: AMGEN
  Company Number: US-AMGEN-USASP2025071188

PATIENT
  Age: 76 Year
  Sex: Female

DRUGS (4)
  1. PROLIA [Suspect]
     Active Substance: DENOSUMAB
     Indication: Osteoporosis
     Route: 058
     Dates: start: 20210707, end: 20210707
  2. PROLIA [Suspect]
     Active Substance: DENOSUMAB
  3. EVENITY [Suspect]
     Active Substance: ROMOSOZUMAB-AQQG
     Indication: Product used for unknown indication
     Route: 065
  4. OXYCODONE [Concomitant]
     Active Substance: OXYCODONE
     Indication: Product used for unknown indication

REACTIONS (9)
  - Stress fracture [Unknown]
  - Tinnitus [Unknown]
  - Pyrexia [Unknown]
  - Influenza like illness [Unknown]
  - Headache [Unknown]
  - Rash [Unknown]
  - Asthenia [Unknown]
  - Herpes zoster [Recovered/Resolved]
  - Post herpetic neuralgia [Recovered/Resolved]

NARRATIVE: CASE EVENT DATE: 20210708
